FAERS Safety Report 6382108-7 (Version None)
Quarter: 2009Q3

REPORT INFORMATION
  Report Type: 
  Country: None (occurrence: None)
  Receive Date: 20090925
  Receipt Date: 20090914
  Transmission Date: 20100115
  Serious: Yes (Other)
  Sender: FDA-Public Use
  Company Number: 2009SS000047

PATIENT

DRUGS (1)
  1. MYOBLOC [Suspect]
     Indication: TORTICOLLIS
     Dosage: X1; IM
     Route: 030

REACTIONS (1)
  - ANAPHYLACTIC REACTION [None]
